FAERS Safety Report 6437592-7 (Version None)
Quarter: 2009Q4

REPORT INFORMATION
  Report Type: 
  Country: None (occurrence: None)
  Receive Date: 20091112
  Receipt Date: 20091109
  Transmission Date: 20100525
  Serious: Yes (Other)
  Sender: FDA-Public Use
  Company Number: US-JNJCH-2009029381

PATIENT
  Age: 69 Year
  Sex: Female
  Weight: 72.6 kg

DRUGS (3)
  1. ROGAINE [Suspect]
     Indication: ALOPECIA
     Dosage: TEXT:AS DIRECTED TWICE DAILY
     Route: 061
  2. ATENOLOL [Concomitant]
     Indication: HYPERTENSION
     Route: 048
  3. SIMVASTATIN [Concomitant]
     Indication: BLOOD CHOLESTEROL INCREASED
     Route: 048

REACTIONS (2)
  - ALOPECIA [None]
  - PSORIASIS [None]
